FAERS Safety Report 5405557-X (Version None)
Quarter: 2007Q3

REPORT INFORMATION
  Report Type: 
  Country: None (occurrence: None)
  Receive Date: 20070803
  Receipt Date: 20070725
  Transmission Date: 20080115
  Serious: Yes (Hospitalization)
  Sender: FDA-Public Use
  Company Number: FR-PFIZER INC-2007062076

PATIENT
  Age: 79 Year
  Sex: Female

DRUGS (6)
  1. XANAX [Suspect]
     Route: 048
     Dates: start: 20061107, end: 20061107
  2. PAROXETINE [Suspect]
     Dosage: TEXT:1 DOSAGE FORM
     Route: 048
     Dates: start: 20061107, end: 20061107
  3. FUROSEMIDE [Concomitant]
     Route: 048
  4. NICORANDIL [Concomitant]
     Route: 048
  5. ASPIRIN [Concomitant]
  6. ESOMEPRAZOLE MAGNESIUM [Concomitant]
     Route: 048

REACTIONS (4)
  - BRADYCARDIA [None]
  - HYPONATRAEMIA [None]
  - RIB FRACTURE [None]
  - SYNCOPE [None]
